FAERS Safety Report 6213331-X (Version None)
Quarter: 2009Q2

REPORT INFORMATION
  Report Type: 
  Country: None (occurrence: None)
  Receive Date: 20090601
  Receipt Date: 20090601
  Transmission Date: 20091009
  Serious: Yes (Hospitalization)
  Sender: FDA-Public Use
  Company Number: None

PATIENT
  Sex: Male
  Weight: 61.3 kg

DRUGS (14)
  1. G-CSF (FILGRASTIM, AMGEN) [Suspect]
     Dosage: 606 MG
  2. PREDNISONE [Suspect]
     Dosage: 420 MG
  3. VINCRISTINE SULFATE [Suspect]
     Dosage: 2.4 MG
  4. BLEOMYCIN [Suspect]
     Dosage: 8.7 MG
  5. CYCLOPHOSPHAMIDE [Suspect]
     Dosage: 1390 MG
  6. DOXORUBICIN HYDROCHLORIDE [Suspect]
     Dosage: 88 MG
  7. ETOPOSIDE [Suspect]
     Dosage: 654 MG
  8. OXYCODONE AND ACETAMINOPHEN [Concomitant]
  9. BENADRYL [Concomitant]
  10. FORTAZ [Concomitant]
  11. ONDANSETRON [Concomitant]
  12. RANITIDINE [Concomitant]
  13. SULFAMETHOXAZOLE AND TRIMETHOPRIM [Concomitant]
  14. ZOFRAN [Concomitant]

REACTIONS (7)
  - ABDOMINAL PAIN [None]
  - FLUSHING [None]
  - LIP SWELLING [None]
  - NAUSEA [None]
  - PRESYNCOPE [None]
  - RASH [None]
  - UNRESPONSIVE TO STIMULI [None]
